FAERS Safety Report 10408571 (Version 1)
Quarter: 2014Q3

REPORT INFORMATION
  Report Type: Spontaneous
  Country: AU (occurrence: AU)
  Receive Date: 20140826
  Receipt Date: 20140826
  Transmission Date: 20150326
  Serious: Yes (Other)
  Sender: FDA-Public Use
  Company Number: PHHY2014AU102365

PATIENT
  Sex: Female

DRUGS (1)
  1. IMATINIB [Suspect]
     Active Substance: IMATINIB
     Indication: CHRONIC MYELOID LEUKAEMIA
     Dosage: 400 TO 600 MG PER DAY

REACTIONS (15)
  - Ocular hyperaemia [Recovering/Resolving]
  - Sinusitis [Unknown]
  - C-reactive protein increased [Unknown]
  - Nasal inflammation [Unknown]
  - VIth nerve paralysis [Recovering/Resolving]
  - Diplopia [Unknown]
  - Blindness [Unknown]
  - Red blood cell sedimentation rate increased [Unknown]
  - Cushingoid [Unknown]
  - Cataract [Unknown]
  - Epistaxis [Unknown]
  - Parophthalmia [Unknown]
  - Night sweats [Unknown]
  - Arthralgia [Unknown]
  - Eye pain [Unknown]

NARRATIVE: CASE EVENT DATE: 201006
